FAERS Safety Report 4642123-8 (Version None)
Quarter: 2005Q2

REPORT INFORMATION
  Report Type: 
  Country: None (occurrence: None)
  Receive Date: 20050420
  Receipt Date: 20050405
  Transmission Date: 20051028
  Serious: Yes (Disabling)
  Sender: FDA-Public Use
  Company Number: US_980808971

PATIENT
  Age: 85 Year
  Sex: Male
  Weight: 123 kg

DRUGS (11)
  1. HUMALOG [Suspect]
     Indication: DIABETES MELLITUS NON-INSULIN-DEPENDENT
     Dosage: 100 U DAY
     Dates: start: 19970301
  2. HUMULIN U [Suspect]
     Indication: DIABETES MELLITUS
     Dosage: 140 U DAY
     Dates: start: 19990101
  3. HUMULIN R [Suspect]
     Indication: DIABETES MELLITUS NON-INSULIN-DEPENDENT
     Dates: start: 19860101, end: 19990101
  4. HUMULIN N [Suspect]
     Indication: DIABETES MELLITUS NON-INSULIN-DEPENDENT
     Dosage: 70 U DAY
     Dates: start: 19860101, end: 19990101
  5. NOVOLIN (INSULIN ASPART) [Concomitant]
  6. REZULIN [Concomitant]
  7. LASIX [Concomitant]
  8. TRENTAL [Concomitant]
  9. VITAMIN E [Concomitant]
  10. ATORVASTATIN CALCIUM [Concomitant]
  11. VITAMIN C [Concomitant]

REACTIONS (9)
  - BLOOD DISORDER [None]
  - BLOOD GLUCOSE INCREASED [None]
  - DRUG INEFFECTIVE [None]
  - HYPOGLYCAEMIA [None]
  - INJECTION SITE PAIN [None]
  - OSTEOARTHRITIS [None]
  - PHARMACEUTICAL PRODUCT COMPLAINT [None]
  - SPINAL DISORDER [None]
  - WEIGHT INCREASED [None]
